FAERS Safety Report 6611033-9 (Version None)
Quarter: 2010Q1

REPORT INFORMATION
  Report Type: 
  Country: None (occurrence: None)
  Receive Date: 20100222
  Receipt Date: 20100208
  Transmission Date: 20100710
  Serious: Yes (Hospitalization)
  Sender: FDA-Public Use
  Company Number: 008816

PATIENT
  Sex: Female

DRUGS (7)
  1. PLETAL [Suspect]
     Indication: LACUNAR INFARCTION
     Dosage: 100 MG, BID ORAL
     Route: 048
     Dates: start: 20090101, end: 20100112
  2. MICARDIS [Suspect]
     Dosage: ORAL
     Route: 048
  3. AMLODIPINE BESYLATE [Concomitant]
  4. UNSPECIFIED DRUG [Concomitant]
  5. GASPORT (FAMOTIDINE) [Concomitant]
  6. MUCODYNE 9CARBOCYSTEINE) [Concomitant]
  7. PRANLUKAST [Concomitant]

REACTIONS (2)
  - EOSINOPHILIC PNEUMONIA [None]
  - LYMPHOCYTE STIMULATION TEST POSITIVE [None]
